FAERS Safety Report 5975634-3 (Version None)
Quarter: 2008Q4

REPORT INFORMATION
  Report Type: 
  Country: None (occurrence: None)
  Receive Date: 20081128
  Receipt Date: 20081114
  Transmission Date: 20090506
  Serious: Yes (Hospitalization, Other)
  Sender: FDA-Public Use
  Company Number: ALK_00754_2008

PATIENT
  Sex: Female

DRUGS (5)
  1. VIVITROL [Suspect]
     Indication: ALCOHOLISM
     Dosage: 380 MG 1X/MONTH INTRAMUSCULAR
     Route: 030
     Dates: start: 20071101
  2. KLONOPIN [Concomitant]
  3. LAMICTAL [Concomitant]
  4. VISTARIL /00058402/ [Concomitant]
  5. SYNTHROID [Concomitant]

REACTIONS (3)
  - DRUG INEFFECTIVE [None]
  - OVARIAN CYST [None]
  - PROCEDURAL PAIN [None]
